FAERS Safety Report 5237618-2 (Version None)
Quarter: 2007Q1

REPORT INFORMATION
  Report Type: 
  Country: None (occurrence: None)
  Receive Date: 20070214
  Receipt Date: 20070205
  Transmission Date: 20070707
  Serious: Yes (Death, Hospitalization)
  Sender: FDA-Public Use
  Company Number: US-JNJFOC-20061106297

PATIENT
  Sex: Male
  Weight: 75.3 kg

DRUGS (9)
  1. REMICADE [Suspect]
     Route: 042
  2. REMICADE [Suspect]
     Indication: RHEUMATOID ARTHRITIS
     Route: 042
  3. VICODIN [Concomitant]
  4. LASIX [Concomitant]
  5. NEXIUM [Concomitant]
  6. PREDNISONE [Concomitant]
  7. VITAMINS [Concomitant]
  8. PROCRIT [Concomitant]
  9. NEUPOGEN [Concomitant]

REACTIONS (4)
  - ARTHRALGIA [None]
  - PNEUMONIA [None]
  - STAPHYLOCOCCAL BACTERAEMIA [None]
  - URINARY TRACT INFECTION [None]
